FAERS Safety Report 5722311-X (Version None)
Quarter: 2008Q2

REPORT INFORMATION
  Report Type: 
  Country: None (occurrence: None)
  Receive Date: 20080429
  Receipt Date: 20070627
  Transmission Date: 20081010
  Serious: No
  Sender: FDA-Public Use
  Company Number: US-ASTRAZENECA-2007UW15201

PATIENT
  Age: 58 Year
  Sex: Female

DRUGS (3)
  1. NEXIUM [Suspect]
     Indication: DYSPEPSIA
     Route: 048
     Dates: start: 20070530, end: 20070530
  2. CELEXA [Suspect]
     Indication: ANXIETY
     Route: 048
     Dates: start: 20070530
  3. SYNTHROID [Concomitant]

REACTIONS (7)
  - DISTURBANCE IN ATTENTION [None]
  - DIZZINESS [None]
  - DRY MOUTH [None]
  - HYPERHIDROSIS [None]
  - NAUSEA [None]
  - NIGHTMARE [None]
  - TREMOR [None]
